FAERS Safety Report 20102927 (Version 6)
Quarter: 2022Q1

REPORT INFORMATION
  Report Type: Report from Study
  Country: US (occurrence: US)
  Receive Date: 20211123
  Receipt Date: 20220321
  Transmission Date: 20220424
  Serious: No
  Sender: FDA-Public Use
  Company Number: US-NOVARTISTESTPH-NVSC2021US268167

PATIENT
  Sex: Male

DRUGS (1)
  1. ENTRESTO [Suspect]
     Active Substance: SACUBITRIL\VALSARTAN
     Indication: Product used for unknown indication
     Dosage: 1 DOSAGE FORM, BID
     Route: 065
     Dates: start: 202110

REACTIONS (6)
  - Weight increased [Unknown]
  - Dysstasia [Recovering/Resolving]
  - Hypokinesia [Recovering/Resolving]
  - Weight decreased [Recovering/Resolving]
  - Fluid retention [Unknown]
  - Cardiac disorder [Unknown]
